FAERS Safety Report 19813138 (Version 1)
Quarter: 2021Q3

REPORT INFORMATION
  Report Type: Spontaneous
  Country: US (occurrence: US)
  Receive Date: 20210910
  Receipt Date: 20210910
  Transmission Date: 20211014
  Serious: Yes (Hospitalization)
  Sender: FDA-Public Use
  Company Number: US-MYLANLABS-2021M1059761

PATIENT
  Age: 25 Year
  Sex: Male

DRUGS (1)
  1. APIXABAN [Suspect]
     Active Substance: APIXABAN
     Indication: ATRIAL THROMBOSIS
     Dosage: 5 MILLIGRAM, BID
     Route: 065

REACTIONS (1)
  - Drug ineffective [Unknown]
